FAERS Safety Report 15392920 (Version 2)
Quarter: 2018Q3

REPORT INFORMATION
  Report Type: Report from Study
  Country: BR (occurrence: BR)
  Receive Date: 20180917
  Receipt Date: 20180919
  Transmission Date: 20181010
  Serious: Yes (Death)
  Sender: FDA-Public Use
  Company Number: BR-PFIZER INC-2018372785

PATIENT
  Age: 13 Year

DRUGS (15)
  1. SODIUM BICARBONATE. [Concomitant]
     Active Substance: SODIUM BICARBONATE
     Indication: SUPPORTIVE CARE
     Dosage: UNK
  2. ALLOPURINOL. [Concomitant]
     Active Substance: ALLOPURINOL
     Indication: SUPPORTIVE CARE
     Dosage: 300 MG, UNK
     Route: 048
  3. METHOTREXATE SODIUM. [Suspect]
     Active Substance: METHOTREXATE SODIUM
     Indication: ACUTE LYMPHOCYTIC LEUKAEMIA
     Dosage: 1 G/M2, OVER 24 HOURS ON DAY 1
     Route: 042
  4. GRANULOCYTE COLONY STIMULATING FACTOR [Concomitant]
     Active Substance: GRANULOCYTE COLONY-STIMULATING FACTOR NOS
     Indication: SUPPORTIVE CARE
     Dosage: 300 UG, 2X/DAY (WAS GIVEN 24 HOURS AFTER THE LAST DAY OF CHEMOTHERAPY OF EACH CYCLE UNTIL NEUTROPHI)
  5. CYTARABINE. [Suspect]
     Active Substance: CYTARABINE
     Indication: ACUTE LYMPHOCYTIC LEUKAEMIA
     Dosage: 3 G/M2, CYCLIC (ON DAYS 2 AND 3, OVER 2 HOURS EVERY 12 HOURS (4 DOSES))
  6. VINCRISTINE [Suspect]
     Active Substance: VINCRISTINE
     Indication: ACUTE LYMPHOCYTIC LEUKAEMIA
     Dosage: 2 MG, CYCLIC (ON DAYS 4 AND 11)
     Route: 042
  7. CALCIUM LEUCOVORIN [Suspect]
     Active Substance: LEUCOVORIN CALCIUM
     Dosage: 15 MG, 4X/DAY (CONTINUED AT A FIXED DOSE, EVERY 6 HOURS FOR 8 DOSES)
     Route: 042
  8. DEXAMETHASONE. [Suspect]
     Active Substance: DEXAMETHASONE
     Indication: ACUTE LYMPHOCYTIC LEUKAEMIA
     Dosage: 40 MG, CYCLIC (ON DAYS 1 TO 4 AND 11 TO 14)
     Route: 042
  9. MESNA. [Suspect]
     Active Substance: MESNA
     Indication: ACUTE LYMPHOCYTIC LEUKAEMIA
     Dosage: AT THE SAME TOTAL DOSE AS CYCLOPHOSPHAMIDE, USING CONTINUOUS I.V. INFUSION FOR 3 DAYS
     Route: 042
  10. METHYLPREDNISOLONE ACETATE. [Suspect]
     Active Substance: METHYLPREDNISOLONE ACETATE
     Indication: ACUTE LYMPHOCYTIC LEUKAEMIA
     Dosage: 50 MG, CYCLIC (TWICE A DAY ON DAYS 1 TO 3 (6 DOSES))
     Route: 042
  11. CYCLOPHOSPHAMIDE. [Suspect]
     Active Substance: CYCLOPHOSPHAMIDE
     Indication: ACUTE LYMPHOCYTIC LEUKAEMIA
     Dosage: 300 MG/M2, EVERY 12 HOURS FOR 6 DOSES ON DAYS 1 TO 3
     Route: 042
  12. CALCIUM LEUCOVORIN [Suspect]
     Active Substance: LEUCOVORIN CALCIUM
     Indication: ACUTE LYMPHOCYTIC LEUKAEMIA
     Dosage: 50 MG, CYCLIC (STARTING 12 OR 24 HOURS AFTER THE COMPLETION OF MTX (HOUR 36 OR HOUR 48))
     Route: 042
  13. METHOTREXATE SODIUM. [Concomitant]
     Active Substance: METHOTREXATE SODIUM
     Indication: PROPHYLAXIS
     Dosage: 12.5 MG, CYCLIC (AT LEAST 6 INTRATHECAL ADMINISTRATIONS ON THE SECOND DAY OF EACH CYCLE)
     Route: 037
  14. ARA?C [Concomitant]
     Active Substance: CYTARABINE
     Indication: PROPHYLAXIS
     Dosage: 100 MG, CYCLIC (AT LEAST 6 INTRATHECAL ADMINISTRATIONS ON THE SECOND DAY OF EACH CYCLE)
     Route: 037
  15. DOXORUBICIN HCL [Suspect]
     Active Substance: DOXORUBICIN HYDROCHLORIDE
     Indication: ACUTE LYMPHOCYTIC LEUKAEMIA
     Dosage: 50 MG/M2, CYCLIC (OVER 2 HOURS ON DAY 4)
     Route: 042

REACTIONS (1)
  - Death [Fatal]
